FAERS Safety Report 6697094-X (Version None)
Quarter: 2010Q2

REPORT INFORMATION
  Report Type: 
  Country: None (occurrence: None)
  Receive Date: 20100426
  Receipt Date: 20100423
  Transmission Date: 20101027
  Serious: Yes (Disabling)
  Sender: FDA-Public Use
  Company Number: IT-JNJFOC-20090201187

PATIENT
  Age: 57 Year
  Sex: Female

DRUGS (6)
  1. TAVANIC [Suspect]
     Indication: TRACHEOBRONCHITIS VIRAL
     Dosage: 1 UNIT
     Route: 048
  2. TAVANIC [Suspect]
     Indication: LUNG DISORDER
     Dosage: 1 UNIT
     Route: 048
  3. TAVANIC [Suspect]
     Indication: PYREXIA
     Dosage: 1 UNIT
     Route: 048
  4. TAVANIC [Suspect]
     Indication: INFLUENZA
     Dosage: 1 UNIT
     Route: 048
  5. TACHIPIRINA [Concomitant]
     Route: 065
  6. PLASIL [Concomitant]
     Route: 065

REACTIONS (4)
  - AGEUSIA [None]
  - ANOSMIA [None]
  - HYPOSMIA [None]
  - PAROSMIA [None]
